FAERS Safety Report 23289357 (Version 1)
Quarter: 2023Q4

REPORT INFORMATION
  Report Type: Spontaneous
  Country: US (occurrence: None)
  Receive Date: 20231211
  Receipt Date: 20231211
  Transmission Date: 20240110
  Serious: Yes (Life-Threatening, Hospitalization)
  Sender: FDA-Public Use
  Company Number: None

PATIENT
  Age: 15 Year
  Sex: Male
  Weight: 79.2 kg

DRUGS (1)
  1. RITUXIMAB [Suspect]
     Active Substance: RITUXIMAB
     Dates: start: 20210920, end: 20210920

REACTIONS (4)
  - Haemodialysis [None]
  - Acute kidney injury [None]
  - Hyperkalaemia [None]
  - Kidney transplant rejection [None]

NARRATIVE: CASE EVENT DATE: 20210921
